FAERS Safety Report 6798326-X (Version None)
Quarter: 2010Q2

REPORT INFORMATION
  Report Type: 
  Country: None (occurrence: None)
  Receive Date: 20100622
  Receipt Date: 20100405
  Transmission Date: 20101027
  Serious: No
  Sender: FDA-Public Use
  Company Number: US-WYE-H14447210

PATIENT
  Age: 16 Year

DRUGS (1)
  1. LYBREL [Suspect]
     Indication: MENOMETRORRHAGIA
     Dosage: 1 TABLET 1X PER 1 DAY, ORAL
     Route: 048
     Dates: start: 20100222, end: 20100402

REACTIONS (5)
  - ABASIA [None]
  - ABDOMINAL DISTENSION [None]
  - HEADACHE [None]
  - PELVIC PAIN [None]
  - RASH GENERALISED [None]
